FAERS Safety Report 21750644 (Version 3)
Quarter: 2023Q1

REPORT INFORMATION
  Report Type: Report from Study
  Country: AU (occurrence: AU)
  Receive Date: 20221219
  Receipt Date: 20230215
  Transmission Date: 20230418
  Serious: Yes (Other)
  Sender: FDA-Public Use
  Company Number: AU-BoehringerIngelheim-2022-BI-208195

PATIENT
  Age: 55 Year
  Sex: Female

DRUGS (4)
  1. SPESOLIMAB [Suspect]
     Active Substance: SPESOLIMAB
     Indication: Palmoplantar pustulosis
     Route: 058
     Dates: start: 20201112
  2. EXFORGE [Concomitant]
     Active Substance: AMLODIPINE BESYLATE\VALSARTAN
     Indication: Hypertension
     Dosage: 10/320 MG
     Route: 048
     Dates: start: 2017, end: 20210606
  3. Dexeryl Emollient [Concomitant]
     Indication: Therapeutic skin care topical
     Dosage: APPLICATION
     Route: 061
     Dates: start: 20190925
  4. FOSINOPRIL [Concomitant]
     Active Substance: FOSINOPRIL
     Indication: Hypertension
     Route: 048
     Dates: start: 20210212, end: 20210606

REACTIONS (2)
  - Benign familial haematuria [Not Recovered/Not Resolved]
  - Chronic kidney disease [Not Recovered/Not Resolved]

NARRATIVE: CASE EVENT DATE: 20210506
